FAERS Safety Report 4594803-0 (Version None)
Quarter: 2005Q1

REPORT INFORMATION
  Report Type: 
  Country: None (occurrence: None)
  Receive Date: 20050223
  Receipt Date: 20050214
  Transmission Date: 20050727
  Serious: Yes (Hospitalization)
  Sender: FDA-Public Use
  Company Number: MED000029

PATIENT
  Age: 72 Year
  Sex: Male
  Weight: 69 kg

DRUGS (6)
  1. GLUCOSE (DEXTROSE) IV INFUSION 5%) [Suspect]
     Indication: JAUNDICE EXTRAHEPATIC OBSTRUCTIVE
     Dosage: 500 ML; BID; INTRAVENOUS
     Route: 042
     Dates: start: 20050202, end: 20050208
  2. VITAMIN C [Concomitant]
  3. SODIUM CHLORIDE 0.9% [Concomitant]
  4. SPASMAGON [Concomitant]
  5. EFFOX [Concomitant]
  6. METOPROLOL [Concomitant]

REACTIONS (2)
  - BODY TEMPERATURE INCREASED [None]
  - CHILLS [None]
